FAERS Safety Report 9958605 (Version 1)
Quarter: 2014Q1

REPORT INFORMATION
  Report Type: Spontaneous
  Country: US (occurrence: None)
  Receive Date: 20140124
  Receipt Date: 20140124
  Transmission Date: 20141002
  Serious: Yes (Life-Threatening, Hospitalization)
  Sender: FDA-Public Use
  Company Number: 2010AP001817

PATIENT
  Age: 50 Year
  Sex: Female

DRUGS (3)
  1. LITHIUM CARBONATE CAPSULES [Suspect]
     Indication: CARDIAC FAILURE CONGESTIVE
  2. BETA BLOCKING AGENTS [Concomitant]
  3. FUROSEMIDE [Concomitant]

REACTIONS (3)
  - Overdose [None]
  - Toxicity to various agents [None]
  - Bradycardia [None]
